FAERS Safety Report 21027588 (Version 2)
Quarter: 2022Q3

REPORT INFORMATION
  Report Type: Report from Study
  Country: CN (occurrence: CN)
  Receive Date: 20220630
  Receipt Date: 20220706
  Transmission Date: 20221027
  Serious: Yes (Hospitalization)
  Sender: FDA-Public Use
  Company Number: CN-DSJP-DSE-2022-121801

PATIENT
  Age: 58 Year
  Sex: Male
  Weight: 81 kg

DRUGS (17)
  1. EDOXABAN [Suspect]
     Active Substance: EDOXABAN
     Indication: Atrial fibrillation
     Dosage: 60 MG, QD
     Route: 048
     Dates: start: 20210925, end: 20220617
  2. EDOXABAN [Suspect]
     Active Substance: EDOXABAN
     Dosage: 30 MG
  3. UNSPECIFIED INGREDIENT [Concomitant]
     Active Substance: UNSPECIFIED INGREDIENT
     Indication: Diabetes mellitus
     Dosage: UNK
  4. UNSPECIFIED INGREDIENT [Concomitant]
     Active Substance: UNSPECIFIED INGREDIENT
     Indication: Hyperlipidaemia
     Dosage: UNK
  5. ANGIOTENSIN II RECEPTOR BLOCKERS (ARBS) [Concomitant]
     Indication: Hypertension
  6. UNSPECIFIED INGREDIENT [Concomitant]
     Active Substance: UNSPECIFIED INGREDIENT
     Indication: Hypertension
     Dosage: UNK
  7. TRADITIONAL CHINESE MEDICINE (TCM) DECOCTION [Concomitant]
     Indication: Self-medication
     Dosage: 1.2 G, TID
     Route: 048
     Dates: start: 2018
  8. TRIMETAZIDINE DIHYDROCHLORIDE [Concomitant]
     Active Substance: TRIMETAZIDINE DIHYDROCHLORIDE
     Indication: Prophylaxis
     Dosage: 35 MG, BID
     Route: 048
     Dates: start: 2018
  9. NORVASC [Concomitant]
     Active Substance: AMLODIPINE BESYLATE
     Indication: Hypertension
     Dosage: 5 MG, QD
     Route: 048
     Dates: start: 2020
  10. MICARDIS [Concomitant]
     Active Substance: TELMISARTAN
     Indication: Hypertension
     Dosage: 40 MG, BID
     Route: 048
     Dates: start: 2018
  11. CRESTOR [Concomitant]
     Active Substance: ROSUVASTATIN CALCIUM
     Indication: Hyperlipidaemia
     Dosage: 10 MG, QD
     Route: 048
     Dates: start: 2018
  12. GLUCOPHAGE [Concomitant]
     Active Substance: METFORMIN HYDROCHLORIDE
     Indication: Diabetes mellitus
     Dosage: 0.5 G, TID
     Route: 048
     Dates: start: 2018
  13. GLUCOBAY [Concomitant]
     Active Substance: ACARBOSE
     Indication: Diabetes mellitus
     Dosage: 0.1 G, TID
     Route: 048
     Dates: start: 2018
  14. GLICLAZIDE [Concomitant]
     Active Substance: GLICLAZIDE
     Indication: Diabetes mellitus
     Dosage: 20 MG, BID
     Route: 048
     Dates: start: 2018
  15. WEI LI MING [Concomitant]
     Indication: Eczema
     Dosage: UNK, QD
     Route: 048
     Dates: start: 2018
  16. SPIRONOLACTONE [Concomitant]
     Active Substance: SPIRONOLACTONE
     Indication: Product used for unknown indication
     Dosage: 20 MG, QD
     Route: 048
     Dates: start: 20220316
  17. FUROSEMIDE [Concomitant]
     Active Substance: FUROSEMIDE
     Indication: Diuretic therapy
     Dosage: 20 MG, QD
     Route: 048
     Dates: start: 20220316

REACTIONS (1)
  - Gastrointestinal haemorrhage [Recovered/Resolved with Sequelae]

NARRATIVE: CASE EVENT DATE: 20220618
